FAERS Safety Report 5026068-X (Version None)
Quarter: 2006Q2

REPORT INFORMATION
  Report Type: 
  Country: None (occurrence: None)
  Receive Date: 20060612
  Receipt Date: 20060612
  Transmission Date: 20061013
  Serious: Yes (Life-Threatening, Other)
  Sender: FDA-Public Use
  Company Number: None

PATIENT
  Age: 27 Year
  Sex: Male
  Weight: 83.0083 kg

DRUGS (2)
  1. EFFEXOR XR [Suspect]
     Indication: PAIN
     Dosage: SEE IMAGE
     Route: 048
     Dates: start: 20060324, end: 20060410
  2. EFFEXOR XR [Suspect]
     Indication: SLEEP DISORDER
     Dosage: SEE IMAGE
     Route: 048
     Dates: start: 20060324, end: 20060410

REACTIONS (3)
  - DEPRESSION [None]
  - INCOHERENT [None]
  - SUICIDAL IDEATION [None]
